FAERS Safety Report 8005693-8 (Version None)
Quarter: 2011Q4

REPORT INFORMATION
  Report Type: 
  Country: None (occurrence: None)
  Receive Date: 20111223
  Receipt Date: 20111221
  Transmission Date: 20120403
  Serious: Yes (Hospitalization)
  Sender: FDA-Public Use
  Company Number: US-ROCHE-1024516

PATIENT
  Sex: Female
  Weight: 83.536 kg

DRUGS (3)
  1. COUMADIN [Concomitant]
  2. LOVENOX [Concomitant]
  3. XELODA [Suspect]
     Indication: COLORECTAL CANCER METASTATIC
     Route: 048
     Dates: start: 20111101

REACTIONS (4)
  - BLOOD MAGNESIUM DECREASED [None]
  - CONVULSION [None]
  - PULMONARY THROMBOSIS [None]
  - FALL [None]
